FAERS Safety Report 8018797-0 (Version None)
Quarter: 2011Q4

REPORT INFORMATION
  Report Type: 
  Country: None (occurrence: None)
  Receive Date: 20111229
  Receipt Date: 20111215
  Transmission Date: 20120403
  Serious: Yes (Other)
  Sender: FDA-Public Use
  Company Number: 1145700

PATIENT

DRUGS (4)
  1. MELPHALAN HYDROCHLORIDE [Suspect]
     Indication: RETINOBLASTOMA
     Dosage: 5 MG, INTRA-ARTERIAL
     Route: 013
  2. SODIUM CHLORIDE [Concomitant]
  3. HEPARIN SODIUM [Concomitant]
  4. CARBOPLATIN [Suspect]
     Indication: RETINOBLASTOMA
     Dosage: 30 MG, INTRA-ARTERIAL
     Route: 013

REACTIONS (8)
  - GLAUCOMA [None]
  - EYELID PTOSIS [None]
  - CONJUNCTIVAL HYPERAEMIA [None]
  - VITREOUS HAEMORRHAGE [None]
  - PANCYTOPENIA [None]
  - EXTRAOCULAR MUSCLE DISORDER [None]
  - IRIS NEOVASCULARISATION [None]
  - EYELID OEDEMA [None]
